FAERS Safety Report 5158552-2 (Version None)
Quarter: 2006Q4

REPORT INFORMATION
  Report Type: 
  Country: None (occurrence: None)
  Receive Date: 20061117
  Receipt Date: 20061109
  Transmission Date: 20070319
  Serious: Yes (Hospitalization)
  Sender: FDA-Public Use
  Company Number: HQWYE328305SEP06

PATIENT
  Age: 28 Year
  Sex: Male

DRUGS (12)
  1. MYLOTARG [Suspect]
     Indication: ACUTE MYELOID LEUKAEMIA RECURRENT
     Dosage: 6 MG/M^2 1X PER 1 DAY
     Route: 041
     Dates: start: 20060609, end: 20060609
  2. MYLOTARG [Suspect]
     Indication: ACUTE MYELOID LEUKAEMIA RECURRENT
     Dosage: 6 MG/M^2 1X PER 1 DAY
     Route: 041
     Dates: start: 20060623, end: 20060623
  3. CYTARABINE [Suspect]
     Indication: ACUTE MYELOID LEUKAEMIA RECURRENT
     Route: 042
     Dates: start: 20060610, end: 20060616
  4. IDARUBICIN HCL [Suspect]
     Indication: ACUTE MYELOID LEUKAEMIA RECURRENT
     Route: 042
     Dates: start: 20060610, end: 20060616
  5. KYTRIL [Concomitant]
  6. SAXIZON (HYDROCORTISONE SODIUM SUCCINATE) [Concomitant]
  7. FRAGMIN [Concomitant]
  8. ITRACONAZOLE [Concomitant]
  9. FAMOTIDINE [Concomitant]
  10. SELBEX (TEPRENONE) [Concomitant]
  11. SULFAMETHOXAZOLE + TRIMETHOPRIM [Concomitant]
  12. POLYMYXIN B SULFATE (POLYMYXIN B SULFATE) [Concomitant]

REACTIONS (10)
  - ANAEMIA [None]
  - CELLULITIS [None]
  - DIARRHOEA [None]
  - EPISTAXIS [None]
  - HEADACHE [None]
  - HEPATIC FUNCTION ABNORMAL [None]
  - NEUTROPHIL COUNT DECREASED [None]
  - PLATELET COUNT DECREASED [None]
  - SEPSIS [None]
  - STOMATITIS [None]
